FAERS Safety Report 9948635 (Version 2)
Quarter: 2014Q1

REPORT INFORMATION
  Report Type: Report from Study
  Country: US (occurrence: US)
  Receive Date: 20140303
  Receipt Date: 20140303
  Transmission Date: 20141002
  Serious: No
  Sender: FDA-Public Use
  Company Number: US-ABBVIE-13P-163-1042634-00

PATIENT
  Age: 49 Year
  Sex: Male
  Weight: 136.2 kg

DRUGS (6)
  1. HUMIRA [Suspect]
     Indication: CROHN^S DISEASE
     Route: 058
     Dates: start: 20130125, end: 20130125
  2. HUMIRA [Suspect]
     Route: 058
  3. ADVAIR [Concomitant]
     Indication: ASTHMA
  4. PRO-AIR ALBUTEROL [Concomitant]
     Indication: ASTHMA
  5. CIPRO [Concomitant]
     Indication: FISTULA
  6. VICODIN [Concomitant]

REACTIONS (3)
  - Dry mouth [Recovering/Resolving]
  - Heart rate increased [Recovering/Resolving]
  - Palpitations [Recovering/Resolving]
